FAERS Safety Report 4797066-6 (Version None)
Quarter: 2005Q3

REPORT INFORMATION
  Report Type: 
  Country: None (occurrence: None)
  Receive Date: 20050916
  Receipt Date: 20050420
  Transmission Date: 20060218
  Serious: Yes (Hospitalization, Other)
  Sender: FDA-Public Use
  Company Number: US-JNJFOC-20050305763

PATIENT
  Age: 37 Year
  Sex: Female

DRUGS (11)
  1. TOPAMAX [Suspect]
     Indication: MIGRAINE PROPHYLAXIS
     Dosage: 25 MG, IN 1 DAY, ORAL
     Route: 048
  2. COUMADIN [Concomitant]
  3. LANTUS [Concomitant]
  4. GLUCOPHAGE [Concomitant]
  5. ATIVAN [Concomitant]
  6. AMBIEN [Concomitant]
  7. PROZAC [Concomitant]
  8. ATENOLOL [Concomitant]
  9. DEPAKOTE [Concomitant]
  10. DESYREL [Concomitant]
  11. ASPIRIN [Concomitant]

REACTIONS (1)
  - ANGLE CLOSURE GLAUCOMA [None]
